FAERS Safety Report 18618310 (Version 1)
Quarter: 2020Q4

REPORT INFORMATION
  Report Type: Spontaneous
  Country: RS (occurrence: RS)
  Receive Date: 20201215
  Receipt Date: 20201215
  Transmission Date: 20210114
  Serious: Yes (Hospitalization, Other)
  Sender: FDA-Public Use
  Company Number: RS-GLAXOSMITHKLINE-RS2020GSK247844

PATIENT
  Age: 61 Year
  Sex: Female

DRUGS (1)
  1. DICLOFENAC [Suspect]
     Active Substance: DICLOFENAC
     Indication: PRODUCT USED FOR UNKNOWN INDICATION
     Dosage: UNK

REACTIONS (11)
  - Anaphylactic reaction [Unknown]
  - Oedema [Unknown]
  - Dyspnoea [Unknown]
  - Loss of consciousness [Unknown]
  - Fibrin D dimer increased [Unknown]
  - Erythema [Unknown]
  - Nausea [Unknown]
  - Abdominal pain [Unknown]
  - Hypoxia [Unknown]
  - Somnolence [Unknown]
  - Hypotension [Unknown]
